FAERS Safety Report 17277301 (Version 1)
Quarter: 2020Q1

REPORT INFORMATION
  Report Type: Spontaneous
  Country: US (occurrence: US)
  Receive Date: 20191226
  Receipt Date: 20191226
  Transmission Date: 20200409
  Serious: Yes (Other)
  Sender: FDA-Public Use
  Company Number: None

PATIENT
  Age: 73 Year
  Sex: Female
  Weight: 113.4 kg

DRUGS (8)
  1. SINGULAIR [Concomitant]
     Active Substance: MONTELUKAST SODIUM
  2. GLYBURIDE. [Concomitant]
     Active Substance: GLYBURIDE
  3. THYROID MED [Concomitant]
  4. DUPIXENT [Suspect]
     Active Substance: DUPILUMAB
     Indication: DERMATITIS ATOPIC
     Dosage: 1ST DOSE 300MG IN 2ML ?2ND DOSE 300MG ?EVERY 15 DAYS?
     Route: 058
     Dates: start: 20191030
  5. C-PAP MACHINE [Concomitant]
     Active Substance: DEVICE
  6. LOSARTAN. [Concomitant]
     Active Substance: LOSARTAN
  7. LASIX [Concomitant]
     Active Substance: FUROSEMIDE
  8. ILLEGIBLE [Concomitant]

REACTIONS (5)
  - Burning sensation [None]
  - Rash [None]
  - Blister [None]
  - Swelling [None]
  - Pain [None]

NARRATIVE: CASE EVENT DATE: 20191109
